FAERS Safety Report 17051354 (Version 1)
Quarter: 2019Q4

REPORT INFORMATION
  Report Type: Spontaneous
  Country: CA (occurrence: CA)
  Receive Date: 20191120
  Receipt Date: 20191120
  Transmission Date: 20200122
  Serious: Yes (Other)
  Sender: FDA-Public Use
  Company Number: CA-TEVA-2019-CA-1139073

PATIENT
  Age: 53 Year
  Sex: Female

DRUGS (8)
  1. VITAMIN D3 [Concomitant]
     Active Substance: CHOLECALCIFEROL
     Route: 048
  2. MINOCYCLINE HYDROCHLORIDE. [Concomitant]
     Active Substance: MINOCYCLINE HYDROCHLORIDE
  3. INFLIXIMAB [Suspect]
     Active Substance: INFLIXIMAB
     Indication: CROHN^S DISEASE
     Route: 042
  4. CALCIUM [Concomitant]
     Active Substance: CALCIUM
     Route: 048
  5. PANTOLOC [Concomitant]
     Active Substance: PANTOPRAZOLE SODIUM
  6. SOLU-MEDROL [Concomitant]
     Active Substance: METHYLPREDNISOLONE SODIUM SUCCINATE
     Route: 042
  7. TYLENOL [Concomitant]
     Active Substance: ACETAMINOPHEN
  8. PREDNISONE. [Suspect]
     Active Substance: PREDNISONE
     Indication: PRODUCT USED FOR UNKNOWN INDICATION
     Route: 048

REACTIONS (21)
  - Borderline personality disorder [Unknown]
  - Irritability [Unknown]
  - Abdominal distension [Unknown]
  - Platelet count increased [Unknown]
  - Hypervigilance [Unknown]
  - Drug ineffective [Unknown]
  - Breast abscess [Unknown]
  - Mental disorder [Unknown]
  - Mental impairment [Unknown]
  - Poor venous access [Unknown]
  - Product use issue [Unknown]
  - Administration site induration [Unknown]
  - Blood pressure fluctuation [Unknown]
  - Infusion site discomfort [Unknown]
  - Weight increased [Unknown]
  - C-reactive protein increased [Unknown]
  - Generalised anxiety disorder [Unknown]
  - Abdominal pain [Unknown]
  - Condition aggravated [Unknown]
  - Gastrointestinal sounds abnormal [Unknown]
  - Off label use [Unknown]
